FAERS Safety Report 5087713-6 (Version None)
Quarter: 2006Q3

REPORT INFORMATION
  Report Type: 
  Country: None (occurrence: None)
  Receive Date: 20060821
  Receipt Date: 20060811
  Transmission Date: 20061208
  Serious: Yes (Hospitalization, Other)
  Sender: FDA-Public Use
  Company Number: KADN20060031

PATIENT
  Age: 77 Year
  Sex: Female

DRUGS (9)
  1. MORPHINE [Suspect]
     Indication: DYSPNOEA
     Dosage: 30 MG ONCE PO
     Route: 048
  2. MORPHINE [Suspect]
     Indication: DYSPNOEA
     Dosage: 5 MG TWICE SL
     Route: 060
  3. LORAZEPAM [Concomitant]
  4. FUROSEMIDE [Concomitant]
  5. DIGOXIN [Concomitant]
  6. METOLAZONE [Concomitant]
  7. POTASSIUM [Concomitant]
  8. SPIRONOLACTONE [Concomitant]
  9. WARFARIN SODIUM [Concomitant]

REACTIONS (12)
  - ANXIETY [None]
  - CONDITION AGGRAVATED [None]
  - CONFUSIONAL STATE [None]
  - DELIRIUM [None]
  - DELUSION OF REPLACEMENT [None]
  - FEAR [None]
  - HYPOXIA [None]
  - INFECTION [None]
  - PARANOIA [None]
  - PULMONARY OEDEMA [None]
  - RESTLESSNESS [None]
  - THERAPY NON-RESPONDER [None]
